FAERS Safety Report 5584262-3 (Version None)
Quarter: 2008Q1

REPORT INFORMATION
  Report Type: 
  Country: None (occurrence: None)
  Receive Date: 20080108
  Receipt Date: 20080103
  Transmission Date: 20080703
  Serious: Yes (Other)
  Sender: FDA-Public Use
  Company Number: B0401041A

PATIENT
  Age: 43 Year
  Sex: Female

DRUGS (1)
  1. SEROXAT [Suspect]
     Indication: STRESS
     Route: 065
     Dates: start: 20010810

REACTIONS (10)
  - ANXIETY [None]
  - COORDINATION ABNORMAL [None]
  - DIZZINESS [None]
  - DRUG DEPENDENCE [None]
  - NAUSEA [None]
  - NERVOUSNESS [None]
  - PALPITATIONS [None]
  - PARAESTHESIA [None]
  - TREATMENT NONCOMPLIANCE [None]
  - WITHDRAWAL SYNDROME [None]
